FAERS Safety Report 24382974 (Version 2)
Quarter: 2024Q4

REPORT INFORMATION
  Report Type: Other
  Country: US (occurrence: US)
  Receive Date: 20241001
  Receipt Date: 20241111
  Transmission Date: 20250115
  Serious: No
  Sender: TRAVERE THERAPEUTICS
  Company Number: US-TRAVERE-2024TVT00961

PATIENT
  Sex: Female

DRUGS (1)
  1. FILSPARI [Suspect]
     Active Substance: SPARSENTAN
     Indication: Haematuria
     Dosage: EXPIRY DATE: 31-MAR-2026
     Route: 048
     Dates: start: 202406

REACTIONS (3)
  - Rash [None]
  - Product use in unapproved indication [Unknown]
  - Ocular hyperaemia [Unknown]
